FAERS Safety Report 6686029-1 (Version None)
Quarter: 2010Q2

REPORT INFORMATION
  Report Type: 
  Country: None (occurrence: None)
  Receive Date: 20100419
  Receipt Date: 20100408
  Transmission Date: 20101027
  Serious: Yes (Other)
  Sender: FDA-Public Use
  Company Number: ES-JNJFOC-20100402772

PATIENT
  Age: 28 Year
  Sex: Female

DRUGS (4)
  1. REMICADE [Suspect]
     Indication: PSORIASIS
     Dosage: WEEKS 0, 2 AND 6
     Route: 042
  2. REMICADE [Suspect]
     Dosage: WEEKS 0, 2, AND 6
     Route: 042
  3. REMICADE [Suspect]
     Route: 042
  4. REMICADE [Suspect]
     Route: 042

REACTIONS (4)
  - CAESAREAN SECTION [None]
  - DRUG EFFECT DECREASED [None]
  - DRUG EXPOSURE DURING PREGNANCY [None]
  - INFUSION RELATED REACTION [None]
